FAERS Safety Report 20108266 (Version 1)
Quarter: 2021Q4

REPORT INFORMATION
  Report Type: Spontaneous
  Country: US (occurrence: US)
  Receive Date: 20211124
  Receipt Date: 20211124
  Transmission Date: 20220303
  Serious: No
  Sender: FDA-Public Use
  Company Number: US-drreddys-SPO/USA/21/0143924

PATIENT
  Sex: Male

DRUGS (1)
  1. OMEPRAZOLE [Interacting]
     Active Substance: OMEPRAZOLE
     Indication: Product used for unknown indication
     Dosage: 25 MINUTES BEFORE LUNCH

REACTIONS (2)
  - Drug interaction [Unknown]
  - Inappropriate schedule of product administration [Unknown]
